FAERS Safety Report 10034049 (Version 1)
Quarter: 2014Q1

REPORT INFORMATION
  Report Type: Spontaneous
  Country: KR (occurrence: None)
  Receive Date: 20140320
  Receipt Date: 20140320
  Transmission Date: 20141002
  Serious: Yes (Hospitalization)
  Sender: FDA-Public Use
  Company Number: 2239290

PATIENT
  Age: 52 Year
  Sex: Female

DRUGS (2)
  1. CARBOPLATIN [Suspect]
     Indication: OVARIAN CANCER STAGE III
     Dosage: 400 MG/M 2 MILLIGRAM(S)/SQ. METER (CYCLICAL)
  2. PACLITAXEL [Suspect]
     Indication: OVARIAN CANCER STAGE III
     Dosage: 175 MG/M 2 MILLIGRAM(S) /SQ. METER (CYCLICAL)

REACTIONS (2)
  - Sarcoidosis [None]
  - Cough [None]
